FAERS Safety Report 24438075 (Version 2)
Quarter: 2024Q4

REPORT INFORMATION
  Report Type: Report from Study
  Country: FR (occurrence: FR)
  Receive Date: 20241015
  Receipt Date: 20241115
  Transmission Date: 20250114
  Serious: Yes (Hospitalization)
  Sender: TEVA
  Company Number: FR-TEVA-VS-3252392

PATIENT

DRUGS (1)
  1. RIVASTIGMINE [Suspect]
     Active Substance: RIVASTIGMINE
     Indication: Product used for unknown indication
     Route: 065

REACTIONS (1)
  - Atrioventricular block second degree [Unknown]
